FAERS Safety Report 7101131 (Version 2)
Quarter: 2012Q4

REPORT INFORMATION
  Report Type: 
  Country: US (occurrence: None)
  Receive Date: 20090817
  Receipt Date: 20120912
  Transmission Date: 20130627
  Serious: Yes (Hospitalization, Other)
  Sender: FDA-Public Use
  Company Number: 2009AP003189

PATIENT
  Age: 69 Year
  Sex: Male

DRUGS (6)
  1. AMIODARONE HYDROCHLORIDE [Suspect]
     Dosage: 400 MG; QD;
  2. ASPIRIN [Concomitant]
  3. BECLOMETASONE [Concomitant]
  4. IPRATROPIUM [Concomitant]
  5. DILTIAZEM [Concomitant]
  6. ISOSORBIDE DINITRATE [Concomitant]

REACTIONS (13)
  - Pulmonary alveolar haemorrhage [None]
  - Lung infiltration [None]
  - Pleural effusion [None]
  - Toxicity to various agents [None]
  - Abasia [None]
  - Cardiac failure congestive [None]
  - Respiratory failure [None]
  - Skin discolouration [None]
  - White blood cell count increased [None]
  - Haemoglobin decreased [None]
  - Bundle branch block left [None]
  - Atrioventricular block first degree [None]
  - Respiratory rate increased [None]
